FAERS Safety Report 25474183 (Version 1)
Quarter: 2025Q2

REPORT INFORMATION
  Report Type: Spontaneous
  Country: US (occurrence: US)
  Receive Date: 20250624
  Receipt Date: 20250624
  Transmission Date: 20250716
  Serious: Yes (Other)
  Sender: REGENERON
  Company Number: US-REGENERON PHARMACEUTICALS, INC.-2024-141505

PATIENT

DRUGS (2)
  1. EYLEA HD [Suspect]
     Active Substance: AFLIBERCEPT
     Indication: Product used for unknown indication
  2. EYLEA HD [Suspect]
     Active Substance: AFLIBERCEPT

REACTIONS (2)
  - Ophthalmic artery occlusion [Unknown]
  - Incorrect dose administered [Unknown]
